FAERS Safety Report 10955504 (Version 1)
Quarter: 2015Q1

REPORT INFORMATION
  Report Type: Spontaneous
  Country: US (occurrence: None)
  Receive Date: 20150324
  Receipt Date: 20150324
  Transmission Date: 20150721
  Serious: Yes (Other)
  Sender: FDA-Public Use
  Company Number: 20150165

PATIENT
  Age: 68 Year
  Sex: Male

DRUGS (1)
  1. PHENYLEPHRINE HCL [Suspect]
     Active Substance: PHENYLEPHRINE HYDROCHLORIDE
     Indication: PRODUCT USED FOR UNKNOWN INDICATION
     Route: 042

REACTIONS (8)
  - Accidental overdose [None]
  - Wrong technique in drug usage process [None]
  - Acute myocardial infarction [None]
  - Post procedural complication [None]
  - Heart rate decreased [None]
  - Heart rate increased [None]
  - Epistaxis [None]
  - Hypertension [None]
